FAERS Safety Report 19002859 (Version 2)
Quarter: 2021Q2

REPORT INFORMATION
  Report Type: Spontaneous
  Country: US (occurrence: US)
  Receive Date: 20210312
  Receipt Date: 20210408
  Transmission Date: 20210717
  Serious: No
  Sender: FDA-Public Use
  Company Number: US-AIMMUNE THERAPEUTICS, INC.-2021AIMT00135

PATIENT

DRUGS (2)
  1. PALFORZIA [Suspect]
     Active Substance: PEANUT
     Indication: FOOD ALLERGY
     Dosage: INITIAL DOSE ESCALATION (IDE), ONCE
     Route: 048
     Dates: start: 20210125, end: 20210125
  2. PALFORZIA [Suspect]
     Active Substance: PEANUT
     Dosage: 3 MG, 1X/DAY, INITIAL DOSE ESCALATION (IDE)
     Dates: end: 20210128

REACTIONS (4)
  - Nasal congestion [Recovered/Resolved]
  - Abdominal pain upper [Recovered/Resolved]
  - Lip swelling [Recovered/Resolved]
  - Throat irritation [Recovered/Resolved]

NARRATIVE: CASE EVENT DATE: 20210125
